FAERS Safety Report 24567255 (Version 1)
Quarter: 2024Q4

REPORT INFORMATION
  Report Type: Spontaneous
  Country: GB (occurrence: GB)
  Receive Date: 20241030
  Receipt Date: 20241030
  Transmission Date: 20250115
  Serious: Yes (Other)
  Sender: HETERO
  Company Number: GB-MHRA-32962447

PATIENT
  Age: 33 Year
  Sex: Female
  Weight: 103 kg

DRUGS (1)
  1. ATOMOXETINE [Suspect]
     Active Substance: ATOMOXETINE HYDROCHLORIDE
     Indication: Attention deficit hyperactivity disorder
     Dosage: 18 MG
     Route: 048
     Dates: start: 20240802

REACTIONS (2)
  - Abortion spontaneous [Recovering/Resolving]
  - Maternal exposure during pregnancy [Unknown]
